FAERS Safety Report 5310277-6 (Version None)
Quarter: 2007Q2

REPORT INFORMATION
  Report Type: 
  Country: None (occurrence: None)
  Receive Date: 20070427
  Receipt Date: 20070420
  Transmission Date: 20071010
  Serious: Yes (Other)
  Sender: FDA-Public Use
  Company Number: JP-ABBOTT-07P-087-0364826-00

PATIENT
  Age: 38 Year
  Sex: Male

DRUGS (3)
  1. LOPINAVIR/RITONAVIR [Suspect]
     Indication: HIV INFECTION
     Dosage: NOT REPORTED
     Dates: start: 20050101
  2. DOXORUBICIN HCL [Concomitant]
     Indication: KAPOSI'S SARCOMA
     Dosage: NOT REPORTED
     Dates: end: 20051201
  3. EFAVIRENZ [Concomitant]
     Indication: HIV INFECTION
     Dosage: NOT REPORTED
     Dates: end: 20050101

REACTIONS (2)
  - HISTIOCYTOSIS HAEMATOPHAGIC [None]
  - IMMUNE RECONSTITUTION SYNDROME [None]
